FAERS Safety Report 5522341-7 (Version None)
Quarter: 2007Q4

REPORT INFORMATION
  Report Type: 
  Country: None (occurrence: None)
  Receive Date: 20071120
  Receipt Date: 20071112
  Transmission Date: 20080405
  Serious: Yes (Hospitalization)
  Sender: FDA-Public Use
  Company Number: FR-ELI_LILLY_AND_COMPANY-FR200708004980

PATIENT
  Sex: Female
  Weight: 63 kg

DRUGS (9)
  1. FORTEO [Suspect]
     Indication: OSTEOPOROSIS
     Dosage: 20 UG, DAILY (1/D)
     Route: 058
     Dates: start: 20070530
  2. ELISOR [Concomitant]
     Indication: HYPERCHOLESTEROLAEMIA
     Dosage: 1 D/F, DAILY (1/D)
  3. NITRODERM [Concomitant]
     Indication: ANGINA PECTORIS
     Dosage: 1 D/F, DAILY (1/D)
     Route: 062
  4. PREVISCAN [Concomitant]
     Indication: ATRIAL FIBRILLATION
     Dosage: 0.75 D/F, DAILY (1/D)
  5. SINGULAIR [Concomitant]
     Indication: BRONCHITIS CHRONIC
     Dosage: 1 D/F, DAILY (1/D)
     Route: 048
  6. MIFLASONE [Concomitant]
     Dosage: 2 D/F, DAILY (1/D)
  7. SPIRIVA [Concomitant]
     Dosage: 1 D/F, DAILY (1/D)
  8. RABEPRAZOLE SODIUM [Concomitant]
     Indication: GASTRITIS
     Dosage: 1 D/F, DAILY (1/D)
     Route: 048
  9. CALCIUM D3 [Concomitant]
     Indication: OSTEOPOROSIS
     Dosage: 1 D/F, DAILY (1/D)
     Route: 048

REACTIONS (2)
  - ANGINA PECTORIS [None]
  - ATRIAL FIBRILLATION [None]
